FAERS Safety Report 14482719 (Version 2)
Quarter: 2018Q1

REPORT INFORMATION
  Report Type: Spontaneous
  Country: FR (occurrence: FR)
  Receive Date: 20180203
  Receipt Date: 20180213
  Transmission Date: 20180509
  Serious: Yes (Hospitalization, Other)
  Sender: FDA-Public Use
  Company Number: FR-TEVA-2018-FR-851872

PATIENT
  Sex: Male

DRUGS (2)
  1. COPAXONE [Suspect]
     Active Substance: GLATIRAMER ACETATE
     Indication: MULTIPLE SCLEROSIS
     Dosage: 20 MILLIGRAM/MILLILITERS DAILY;
     Route: 065
     Dates: start: 199406
  2. SOLIAN [Concomitant]
     Active Substance: AMISULPRIDE
     Dosage: STARTED FIFTEEN DAYS EARLIER
     Dates: start: 201801

REACTIONS (4)
  - Depression [Unknown]
  - Injection site pain [Not Recovered/Not Resolved]
  - Injection site swelling [Not Recovered/Not Resolved]
  - Injection site oedema [Not Recovered/Not Resolved]
